FAERS Safety Report 10257180 (Version 1)
Quarter: 2014Q2

REPORT INFORMATION
  Report Type: Spontaneous
  Country: None (occurrence: None)
  Receive Date: 20140623
  Receipt Date: 20140623
  Transmission Date: 20141212
  Serious: No
  Sender: FDA-Public Use
  Company Number: None

PATIENT
  Age: 64 Year
  Sex: Male
  Weight: 51.26 kg

DRUGS (1)
  1. METHOTREXATE [Suspect]

REACTIONS (3)
  - Injection site pain [None]
  - Injection site pain [None]
  - Product substitution issue [None]
